FAERS Safety Report 5794660-0 (Version None)
Quarter: 2008Q2

REPORT INFORMATION
  Report Type: 
  Country: None (occurrence: None)
  Receive Date: 20080627
  Receipt Date: 20080627
  Transmission Date: 20081010
  Serious: No
  Sender: FDA-Public Use
  Company Number: None

PATIENT
  Age: 61 Year
  Sex: Female

DRUGS (1)
  1. GADOLINIUM [Suspect]
     Dosage: X1 CONSTRAST

REACTIONS (2)
  - DYSPNOEA [None]
  - URTICARIA [None]
